FAERS Safety Report 11162162 (Version 1)
Quarter: 2015Q2

REPORT INFORMATION
  Report Type: Spontaneous
  Country: US (occurrence: US)
  Receive Date: 20150604
  Receipt Date: 20150604
  Transmission Date: 20150821
  Serious: No
  Sender: FDA-Public Use
  Company Number: US-SA-2014SA126160

PATIENT
  Age: 70 Year
  Sex: Female

DRUGS (4)
  1. SOLOSTAR [Concomitant]
     Active Substance: DEVICE
     Route: 065
     Dates: start: 2012
  2. SOLOSTAR [Concomitant]
     Active Substance: DEVICE
     Route: 065
     Dates: start: 2012
  3. LANTUS SOLOSTAR [Suspect]
     Active Substance: INSULIN GLARGINE
     Indication: TYPE 2 DIABETES MELLITUS
     Dosage: DOSE : 55-60 UNITS
     Route: 065
     Dates: start: 2012
  4. LANTUS SOLOSTAR [Suspect]
     Active Substance: INSULIN GLARGINE
     Indication: TYPE 2 DIABETES MELLITUS
     Dosage: DOSE : 55-60 UNITS
     Route: 065
     Dates: start: 2012

REACTIONS (2)
  - Product odour abnormal [Unknown]
  - Sinus headache [Unknown]
